FAERS Safety Report 11453687 (Version 1)
Quarter: 2015Q3

REPORT INFORMATION
  Report Type: Spontaneous
  Country: US (occurrence: US)
  Receive Date: 20150831
  Receipt Date: 20150831
  Transmission Date: 20151125
  Serious: No
  Sender: FDA-Public Use
  Company Number: US-ELI_LILLY_AND_COMPANY-US201001000885

PATIENT
  Age: 64 Year
  Sex: Female

DRUGS (2)
  1. LAMICTAL [Concomitant]
     Active Substance: LAMOTRIGINE
  2. CYMBALTA [Suspect]
     Active Substance: DULOXETINE HYDROCHLORIDE
     Indication: BIPOLAR DISORDER
     Route: 048
     Dates: start: 2009

REACTIONS (2)
  - Mania [Unknown]
  - Off label use [Unknown]

NARRATIVE: CASE EVENT DATE: 2009
